FAERS Safety Report 6028718-8 (Version None)
Quarter: 2008Q4

REPORT INFORMATION
  Report Type: 
  Country: None (occurrence: None)
  Receive Date: 20081222
  Receipt Date: 20081103
  Transmission Date: 20090506
  Serious: No
  Sender: FDA-Public Use
  Company Number: ALL1-2008-02984

PATIENT
  Age: 15 Year
  Sex: Male
  Weight: 61.7 kg

DRUGS (2)
  1. VYVANSE [Suspect]
     Dosage: 80 MG, 1X/DAY;QD, ORAL ; 130 MG, (80MG IN THE MORNING, 50MG AT LUNCHTIME DAILY), ORAL
     Route: 048
  2. DOXYCYCLINE [Concomitant]

REACTIONS (4)
  - DRUG INEFFECTIVE [None]
  - INAPPROPRIATE SCHEDULE OF DRUG ADMINISTRATION [None]
  - OFF LABEL USE [None]
  - OVERDOSE [None]
